FAERS Safety Report 10678148 (Version 3)
Quarter: 2016Q3

REPORT INFORMATION
  Report Type: Spontaneous
  Country: BR (occurrence: BR)
  Receive Date: 20141229
  Receipt Date: 20160726
  Transmission Date: 20161109
  Serious: Yes (Other)
  Sender: FDA-Public Use
  Company Number: BR-AMGEN-BRASP2014076414

PATIENT
  Age: 50 Year
  Sex: Female
  Weight: 90 kg

DRUGS (6)
  1. ENBREL [Suspect]
     Active Substance: ETANERCEPT
     Indication: RHEUMATOID ARTHRITIS
     Dosage: 50 MG, WEEKLY EVERY TUESDAY
     Route: 058
     Dates: start: 201303
  2. HCTZ [Concomitant]
     Active Substance: HYDROCHLOROTHIAZIDE
     Dosage: 25 MG, UNK
  3. ENBREL [Suspect]
     Active Substance: ETANERCEPT
     Dosage: UNK
     Route: 065
  4. TRILAX                             /01550501/ [Concomitant]
     Dosage: UNK UNK, QD
     Dates: start: 2014
  5. CAPTOPRIL. [Concomitant]
     Active Substance: CAPTOPRIL
     Indication: BLOOD PRESSURE ABNORMAL
     Dosage: UNK, DAILY
     Dates: start: 2010
  6. HYDROCHLOROTHIAZIDE. [Concomitant]
     Active Substance: HYDROCHLOROTHIAZIDE
     Indication: BLOOD PRESSURE ABNORMAL
     Dosage: UNK, DAILY

REACTIONS (6)
  - Insomnia [Unknown]
  - Cough [Recovered/Resolved]
  - Apathy [Unknown]
  - Pneumonia [Recovered/Resolved]
  - Drug ineffective [Not Recovered/Not Resolved]
  - Injection site pain [Unknown]

NARRATIVE: CASE EVENT DATE: 2013
